FAERS Safety Report 5929038-X (Version None)
Quarter: 2008Q4

REPORT INFORMATION
  Report Type: 
  Country: None (occurrence: None)
  Receive Date: 20081024
  Receipt Date: 20080903
  Transmission Date: 20090506
  Serious: Yes (Congenital Anomaly)
  Sender: FDA-Public Use
  Company Number: CR-JNJFOC-20081005080

PATIENT

DRUGS (1)
  1. TOPAMAX [Suspect]
     Indication: DRUG EXPOSURE DURING PREGNANCY

REACTIONS (1)
  - MENINGOMYELOCELE [None]
